FAERS Safety Report 11654703 (Version 4)
Quarter: 2016Q1

REPORT INFORMATION
  Report Type: Spontaneous
  Country: US (occurrence: US)
  Receive Date: 20151023
  Receipt Date: 20160114
  Transmission Date: 20160525
  Serious: No
  Sender: FDA-Public Use
  Company Number: US-PFIZER INC-2015352935

PATIENT
  Age: 54 Year
  Sex: Female
  Weight: 146 kg

DRUGS (32)
  1. XELJANZ [Suspect]
     Active Substance: TOFACITINIB CITRATE
     Indication: RHEUMATOID ARTHRITIS
     Dosage: 5 MG, 2X/DAY
     Route: 048
     Dates: start: 201509, end: 20151006
  2. SULFASALAZINE. [Concomitant]
     Active Substance: SULFASALAZINE
     Indication: RHEUMATOID ARTHRITIS
     Dosage: 500 MG, 3X/DAY (2 TABS)
     Route: 048
  3. LEVOTHYROXINE. [Concomitant]
     Active Substance: LEVOTHYROXINE
     Indication: HYPOTHYROIDISM
     Dosage: 200 ?G, 1X/DAY
     Route: 048
  4. CENTRUM SILVER [Concomitant]
     Active Substance: MINERALS\VITAMINS
     Dosage: 1 DF, 1X/DAY
     Route: 048
  5. ODORLESS GARLIC [Concomitant]
     Indication: BLOOD CHOLESTEROL
     Dosage: 500MG ONE SOFT GEL THREE TIMES A DAY
     Route: 048
  6. LASIX [Concomitant]
     Active Substance: FUROSEMIDE
     Indication: FLUID RETENTION
     Dosage: 40 MG ONE IN AM AS NEEDED
     Route: 048
  7. MORPHINE SULFATE EXTENDED-RELEASE [Concomitant]
     Active Substance: MORPHINE SULFATE
     Indication: PAIN
     Dosage: 30 MG, 2X/DAY
     Route: 048
  8. VITAMIN D [Concomitant]
     Active Substance: CHOLECALCIFEROL
     Indication: BONE DEVELOPMENT ABNORMAL
     Dosage: 1000 IU ONE AT NIGHT
     Route: 048
  9. FOLIC ACID. [Concomitant]
     Active Substance: FOLIC ACID
     Indication: TOXICITY TO VARIOUS AGENTS
     Dosage: 800 ?G, UNK
     Route: 048
  10. MORPHINE IR [Concomitant]
     Active Substance: MORPHINE
     Indication: PAIN
     Dosage: 30 MG, 3X/DAY
  11. ASPIRIN (E.C.) [Concomitant]
     Active Substance: ASPIRIN
     Indication: CARDIOVASCULAR DISORDER
     Dosage: 325 TABLET ONE IN AM
     Route: 048
  12. FLAXSEED [Concomitant]
     Active Substance: FLAX SEED
     Indication: VITAMIN SUPPLEMENTATION
     Dosage: 1200 MG, UNK
     Route: 048
  13. PREDNISONE. [Concomitant]
     Active Substance: PREDNISONE
     Indication: RHEUMATOID ARTHRITIS
     Dosage: 5 MG 1-2 TABLETS PER DAY FOR 5 DAY AS NEEDED
     Route: 048
  14. DIAZEPAM. [Concomitant]
     Active Substance: DIAZEPAM
     Indication: ANXIETY
     Dosage: 5 MG, 3X/DAY
     Route: 048
  15. SOMA [Concomitant]
     Active Substance: CARISOPRODOL
     Indication: RESTLESS LEGS SYNDROME
     Dosage: 250 MG, 3X/DAY
     Route: 048
  16. CALCIUM +D [Concomitant]
     Active Substance: CALCIUM\VITAMIN D
     Indication: BONE DEVELOPMENT ABNORMAL
     Dosage: 1200MG/1000IU
     Route: 048
  17. GABAPENTIN. [Concomitant]
     Active Substance: GABAPENTIN
     Indication: FIBROMYALGIA
     Dosage: 600 MG, 3X/DAY (2 TABS)
     Route: 048
  18. ARAVA [Concomitant]
     Active Substance: LEFLUNOMIDE
     Indication: RHEUMATOID ARTHRITIS
     Dosage: 20 MG, 1X/DAY
     Route: 048
  19. VYTORIN [Concomitant]
     Active Substance: EZETIMIBE\SIMVASTATIN
     Indication: PAIN
     Dosage: 1% TOPICAL 3X DAILY AS NEEDED
     Route: 061
  20. DYAZIDE [Concomitant]
     Active Substance: HYDROCHLOROTHIAZIDE\TRIAMTERENE
     Indication: BLOOD PRESSURE MEASUREMENT
     Dosage: 37.5/25MG CAPSULES ONCE DAILY
     Route: 048
  21. POTASSIUM [Concomitant]
     Active Substance: POTASSIUM
     Dosage: 10MEQ TABLET ONCE A DAY
     Route: 048
  22. FOLIC ACID. [Concomitant]
     Active Substance: FOLIC ACID
     Indication: ANAEMIA
  23. ZANTAC [Concomitant]
     Active Substance: RANITIDINE HYDROCHLORIDE
     Indication: ABDOMINAL DISCOMFORT
     Dosage: 150 MG, UNK
     Route: 048
  24. PROBIOTIC [Concomitant]
     Active Substance: PROBIOTICS NOS
     Indication: CONSTIPATION
  25. PAXIL [Concomitant]
     Active Substance: PAROXETINE HYDROCHLORIDE
     Indication: DEPRESSION
  26. CHROMIUM PICOLINATE [Concomitant]
     Active Substance: CHROMIUM PICOLINATE
     Indication: METABOLIC DISORDER
     Dosage: 200 MG ONCE IN THE MORNING
     Route: 048
  27. PAXIL [Concomitant]
     Active Substance: PAROXETINE HYDROCHLORIDE
     Indication: ANXIETY
     Dosage: 30 MG, 1X/DAY
     Route: 048
  28. ODORLESS GARLIC [Concomitant]
     Indication: ANTIOXIDANT THERAPY
  29. PROBIOTIC [Concomitant]
     Active Substance: PROBIOTICS NOS
     Indication: INTESTINAL CONGESTION
     Dosage: UNK (20B ACTIVE CULTURES 2 CAPSULES IN THE MORNING)
     Route: 048
  30. CHROMIUM PICOLINATE [Concomitant]
     Active Substance: CHROMIUM PICOLINATE
     Indication: BLOOD GLUCOSE ABNORMAL
  31. CINNAMON. [Concomitant]
     Active Substance: CINNAMON
     Indication: METABOLIC DISORDER
     Dosage: 1000 MG ONCE IN THE MORNING
     Route: 048
  32. CINNAMON. [Concomitant]
     Active Substance: CINNAMON
     Indication: BLOOD GLUCOSE ABNORMAL

REACTIONS (3)
  - Sinusitis [Recovered/Resolved]
  - Upper-airway cough syndrome [Recovering/Resolving]
  - Malaise [Unknown]

NARRATIVE: CASE EVENT DATE: 20151001
